FAERS Safety Report 8717039 (Version 2)
Quarter: 2012Q4

REPORT INFORMATION
  Report Type: 
  Country: US (occurrence: US)
  Receive Date: 20120810
  Receipt Date: 20121009
  Transmission Date: 20130627
  Serious: Yes (Other)
  Sender: FDA-Public Use
  Company Number: US-PFIZER INC-2012191208

PATIENT
  Sex: Female

DRUGS (3)
  1. LYRICA [Suspect]
     Indication: PAIN
     Dosage: UNK
  2. MEBARAL [Suspect]
     Dosage: UNK
  3. OXCARBAZEPINE [Suspect]
     Dosage: UNK

REACTIONS (10)
  - Neoplasm malignant [Unknown]
  - Breast pain [Unknown]
  - Breast tenderness [Unknown]
  - Dyspnoea [Unknown]
  - Pain [Unknown]
  - Drug ineffective [Unknown]
  - Blood sodium abnormal [Unknown]
  - Vomiting [Unknown]
  - Diarrhoea [Unknown]
  - Constipation [Unknown]
